FAERS Safety Report 7615720-5 (Version None)
Quarter: 2011Q3

REPORT INFORMATION
  Report Type: 
  Country: None (occurrence: None)
  Receive Date: 20110711
  Receipt Date: 20110628
  Transmission Date: 20111222
  Serious: Yes (Hospitalization)
  Sender: FDA-Public Use
  Company Number: 2011AC000040

PATIENT
  Age: 65 Year
  Sex: Female

DRUGS (22)
  1. VITAMIN B-12 [Concomitant]
  2. DIGOXIN [Suspect]
     Dosage: 0.125 MG;QD;PO
     Route: 048
     Dates: start: 20080715
  3. ASPIRIN [Concomitant]
  4. REQUIP [Concomitant]
  5. ZOCOR [Concomitant]
  6. COUMADIN [Concomitant]
  7. CELEXA [Concomitant]
  8. TRAZODONE HCL [Concomitant]
  9. LEVAQUIN [Concomitant]
  10. KLONOPIN [Concomitant]
  11. TOPROL-XL [Concomitant]
  12. ALBUTEROL SULFATE AUTOHALER [Concomitant]
  13. POTASSIUM [Concomitant]
  14. DIGOXIN [Suspect]
     Indication: ATRIAL FIBRILLATION
     Dosage: 0.250 MG;QD;PO
     Route: 048
     Dates: start: 20080407, end: 20080411
  15. LISINOPRIL [Concomitant]
  16. ADVAIR DISKUS 100/50 [Concomitant]
  17. VYTORIN LASIX [Concomitant]
  18. COREG [Concomitant]
  19. SOTALOL HCL [Concomitant]
  20. AMIODARONE HCL [Concomitant]
  21. METOPROLOL TARTRATE [Concomitant]
  22. SIMVASTATIN [Concomitant]

REACTIONS (15)
  - COUGH [None]
  - NAUSEA [None]
  - URINARY TRACT INFECTION [None]
  - GAIT DISTURBANCE [None]
  - ATRIAL FIBRILLATION [None]
  - SICK SINUS SYNDROME [None]
  - ASTHENIA [None]
  - INTERNATIONAL NORMALISED RATIO INCREASED [None]
  - ORTHOPNOEA [None]
  - VOMITING [None]
  - DEHYDRATION [None]
  - ELECTROCARDIOGRAM ST-T SEGMENT ABNORMAL [None]
  - DIZZINESS [None]
  - DYSPNOEA EXERTIONAL [None]
  - TOXICITY TO VARIOUS AGENTS [None]
